FAERS Safety Report 4472574-6 (Version None)
Quarter: 2004Q4

REPORT INFORMATION
  Report Type: 
  Country: None (occurrence: None)
  Receive Date: 20041013
  Receipt Date: 20041004
  Transmission Date: 20050328
  Serious: Yes (Other)
  Sender: FDA-Public Use
  Company Number: US-JNJFOC-20041001244

PATIENT
  Sex: Female
  Weight: 56.25 kg

DRUGS (7)
  1. REMICADE [Suspect]
     Route: 042
  2. REMICADE [Suspect]
     Indication: CROHN'S DISEASE
     Route: 042
  3. OXYCONTIN [Concomitant]
  4. PHENERGAN [Concomitant]
  5. BACLOFEN [Concomitant]
  6. BELLADONNA [Concomitant]
  7. LEXAPRO [Concomitant]

REACTIONS (4)
  - HAEMORRHAGE [None]
  - HISTOPLASMOSIS [None]
  - PYODERMA GANGRENOSUM [None]
  - VEIN DISORDER [None]
